FAERS Safety Report 5853297-5 (Version None)
Quarter: 2008Q3

REPORT INFORMATION
  Report Type: 
  Country: None (occurrence: None)
  Receive Date: 20080820
  Receipt Date: 20080814
  Transmission Date: 20090109
  Serious: Yes (Hospitalization)
  Sender: FDA-Public Use
  Company Number: 2008SP011153

PATIENT
  Age: 51 Year
  Sex: Female

DRUGS (4)
  1. PEG-INTRON [Suspect]
     Indication: HEPATITIS C
     Dosage: 150 MCG UNK SC; 120.5 MCG UNK SC
     Route: 058
     Dates: end: 20080803
  2. PEG-INTRON [Suspect]
     Indication: HEPATITIS C
     Dosage: 150 MCG UNK SC; 120.5 MCG UNK SC
     Route: 058
     Dates: start: 20080217
  3. REBETOL [Suspect]
     Indication: HEPATITIS C
     Dosage: 1000 MG QD PO ; 800 MG QD PO
     Route: 048
     Dates: end: 20080803
  4. REBETOL [Suspect]
     Indication: HEPATITIS C
     Dosage: 1000 MG QD PO ; 800 MG QD PO
     Route: 048
     Dates: start: 20080217

REACTIONS (13)
  - ABDOMINAL PAIN UPPER [None]
  - ANAEMIA [None]
  - CONSTIPATION [None]
  - DEHYDRATION [None]
  - DIZZINESS [None]
  - HEADACHE [None]
  - HIP FRACTURE [None]
  - LOSS OF CONSCIOUSNESS [None]
  - RIB FRACTURE [None]
  - ROAD TRAFFIC ACCIDENT [None]
  - THERAPEUTIC RESPONSE DELAYED [None]
  - WHITE BLOOD CELL COUNT DECREASED [None]
  - YELLOW SKIN [None]
